FAERS Safety Report 8478380-X (Version None)
Quarter: 2012Q2

REPORT INFORMATION
  Report Type: 
  Country: None (occurrence: None)
  Receive Date: 20120629
  Receipt Date: 20120622
  Transmission Date: 20120825
  Serious: Yes (Hospitalization)
  Sender: FDA-Public Use
  Company Number: IT-ROCHE-1033032

PATIENT
  Sex: Female
  Weight: 80 kg

DRUGS (6)
  1. PREDNISONE [Concomitant]
     Indication: SUPPORTIVE CARE
     Dates: start: 20120122, end: 20120127
  2. VISMODEGIB [Suspect]
     Indication: BASAL CELL CARCINOMA
     Dosage: TAKEN DAILY, LAST DOSE PRIOR TO HEPATOTOXICITY: 18/JAN/2012
     Route: 048
     Dates: start: 20111125, end: 20120101
  3. LEVOTHYROXINE SODIUM [Concomitant]
     Indication: HYPOTHYROIDISM
  4. OMEPRAZOLE [Concomitant]
     Indication: SUPPORTIVE CARE
     Dates: start: 20120122, end: 20120127
  5. DULOXETINE HYDROCHLORIDE [Suspect]
     Indication: PRODUCT USED FOR UNKNOWN INDICATION
     Dates: start: 20070127, end: 20120128
  6. VISMODEGIB [Suspect]
     Dates: start: 20120222

REACTIONS (1)
  - HEPATOTOXICITY [None]
